FAERS Safety Report 23710147 (Version 2)
Quarter: 2024Q2

REPORT INFORMATION
  Report Type: Spontaneous
  Country: IT (occurrence: IT)
  Receive Date: 20240405
  Receipt Date: 20240416
  Transmission Date: 20240716
  Serious: Yes (Life-Threatening, Hospitalization, Other)
  Sender: FDA-Public Use
  Company Number: None

PATIENT
  Age: 40 Year
  Sex: Female

DRUGS (3)
  1. PREGABALIN [Suspect]
     Active Substance: PREGABALIN
     Indication: Product used for unknown indication
     Dosage: UNK (2 BLISTER PACKS)
     Route: 065
  2. QUETIAPINE FUMARATE [Suspect]
     Active Substance: QUETIAPINE FUMARATE
     Indication: Product used for unknown indication
     Dosage: UNK (23 BLISTER PACKS)
     Route: 065
  3. CITALOPRAM [Suspect]
     Active Substance: CITALOPRAM\CITALOPRAM HYDROBROMIDE
     Indication: Product used for unknown indication
     Dosage: UNK (56 BLISTER PACKS)
     Route: 065

REACTIONS (5)
  - Altered state of consciousness [Recovered/Resolved]
  - Toxicity to various agents [Recovered/Resolved]
  - Bezoar [Recovered/Resolved]
  - Coma [Recovered/Resolved]
  - Blood creatine phosphokinase increased [Recovered/Resolved]
